FAERS Safety Report 9325605 (Version 7)
Quarter: 2016Q3

REPORT INFORMATION
  Report Type: Report from Study
  Country: DE (occurrence: DE)
  Receive Date: 20130604
  Receipt Date: 20160726
  Transmission Date: 20161109
  Serious: Yes (Death, Hospitalization, Other)
  Sender: FDA-Public Use
  Company Number: DE-ROCHE-1231700

PATIENT
  Age: 67 Year
  Sex: Female
  Weight: 95 kg

DRUGS (33)
  1. 5-FU [Suspect]
     Active Substance: FLUOROURACIL
     Route: 041
     Dates: start: 20130225, end: 20130227
  2. 5-FU [Suspect]
     Active Substance: FLUOROURACIL
     Dosage: SUBSEQUENT DOSES ON 25/FEB/2013 AND 11/MAR/2013
     Route: 040
     Dates: start: 20130211
  3. FOLINIC ACID [Suspect]
     Active Substance: LEUCOVORIN
     Indication: COLORECTAL CANCER
     Dosage: SUBSEQUENT DOSES ON 25/FEB/2013 AND 11/MAR/2013
     Route: 042
     Dates: start: 20130211
  4. FUROSEMID [Concomitant]
     Active Substance: FUROSEMIDE
  5. BEVACIZUMAB [Suspect]
     Active Substance: BEVACIZUMAB
     Route: 042
     Dates: start: 20130715, end: 20130715
  6. IRINOTECAN [Suspect]
     Active Substance: IRINOTECAN
     Indication: COLORECTAL CANCER
     Dosage: SUBSEQUENT DOSES ON 25/FEB/2013 AND 11/MAR/2013
     Route: 042
     Dates: start: 20130211
  7. 5-FU [Suspect]
     Active Substance: FLUOROURACIL
     Route: 040
     Dates: start: 20131106, end: 20131118
  8. FLECAINIDE [Concomitant]
     Active Substance: FLECAINIDE
     Indication: ARRHYTHMIA
     Route: 048
  9. 5-FU [Suspect]
     Active Substance: FLUOROURACIL
     Route: 041
     Dates: start: 20130311, end: 20130313
  10. 5-FU [Suspect]
     Active Substance: FLUOROURACIL
     Route: 041
     Dates: start: 20130408, end: 20130410
  11. OPIPRAMOL [Concomitant]
     Active Substance: OPIPRAMOL
     Indication: DEPRESSION
     Route: 048
  12. BEVACIZUMAB [Suspect]
     Active Substance: BEVACIZUMAB
     Indication: COLORECTAL CANCER METASTATIC
     Route: 042
     Dates: start: 20130211, end: 20130211
  13. IRINOTECAN [Suspect]
     Active Substance: IRINOTECAN
     Dosage: 230-360 MG
     Route: 042
     Dates: start: 20131106
  14. 5-FU [Suspect]
     Active Substance: FLUOROURACIL
     Indication: COLORECTAL CANCER
     Route: 041
     Dates: start: 20130211, end: 20130213
  15. 5-FU [Suspect]
     Active Substance: FLUOROURACIL
     Route: 041
     Dates: start: 20130325, end: 20130327
  16. 5-FU [Suspect]
     Active Substance: FLUOROURACIL
     Route: 041
     Dates: start: 20130422, end: 20130424
  17. 5-FU [Suspect]
     Active Substance: FLUOROURACIL
     Route: 041
     Dates: start: 20130617, end: 20130619
  18. 5-FU [Suspect]
     Active Substance: FLUOROURACIL
     Route: 041
     Dates: start: 20131106, end: 20131108
  19. 5-FU [Suspect]
     Active Substance: FLUOROURACIL
     Dosage: SUBSEQUENT DOSES ON 23/MAR/2014, 08/APR/2013, 22/APR/2013, 06/MAY/2013, 21/MAY/2013, 05/JUN/2013, 17
     Route: 040
  20. MARCUMAR [Concomitant]
     Active Substance: PHENPROCOUMON
     Indication: ATRIAL FIBRILLATION
     Dosage: AS REQUIRED
     Route: 048
  21. METOPROLOL SUCCINATE. [Concomitant]
     Active Substance: METOPROLOL SUCCINATE
     Indication: CARDIAC FAILURE
  22. IRINOTECAN [Suspect]
     Active Substance: IRINOTECAN
     Dosage: SUBSEQUENT DOSES ON 22/APR/2013, 06/MAY/2013, 21/MAY/2013, 05/JUN/2013, 17/JUN/2013, 01/JUL/2013 AND
     Route: 042
     Dates: start: 20130408
  23. 5-FU [Suspect]
     Active Substance: FLUOROURACIL
     Route: 041
     Dates: start: 20130506, end: 20130508
  24. NOVAMINSULFON [Concomitant]
     Active Substance: METAMIZOLE
     Indication: PAIN
     Route: 048
  25. 5-FU [Suspect]
     Active Substance: FLUOROURACIL
     Route: 041
     Dates: start: 20130521
  26. 5-FU [Suspect]
     Active Substance: FLUOROURACIL
     Route: 041
     Dates: start: 20130605, end: 20130607
  27. FOLINIC ACID [Suspect]
     Active Substance: LEUCOVORIN
     Dosage: SUBSEQUENT DOSES ON 08/APR/2013, 22/APR/2013. 06/MAY/2013, 21/MAY/2013, 05/JUN/2013, 17/JUN/2013, 01
     Route: 042
     Dates: start: 20130325
  28. FOLINIC ACID [Suspect]
     Active Substance: LEUCOVORIN
     Route: 042
     Dates: start: 20131106
  29. METOCLOPRAMID [Concomitant]
     Active Substance: METOCLOPRAMIDE
  30. IRINOTECAN [Suspect]
     Active Substance: IRINOTECAN
     Dosage: SUBSEQUENT DOSE ON 15/JUL/2013
     Route: 042
     Dates: start: 20130325
  31. 5-FU [Suspect]
     Active Substance: FLUOROURACIL
     Route: 041
     Dates: start: 20130715, end: 20130717
  32. PANTOZOL [Concomitant]
     Active Substance: PANTOPRAZOLE SODIUM
     Indication: PROPHYLAXIS
     Route: 048
  33. 5-FU [Suspect]
     Active Substance: FLUOROURACIL
     Route: 041
     Dates: start: 20130701, end: 20130703

REACTIONS (7)
  - Infection [Not Recovered/Not Resolved]
  - Pneumonia [Recovered/Resolved]
  - Abdominal pain upper [Recovering/Resolving]
  - Malignant neoplasm progression [Fatal]
  - General physical health deterioration [Recovered/Resolved]
  - Laboratory test abnormal [Not Recovered/Not Resolved]
  - General physical health deterioration [Not Recovered/Not Resolved]

NARRATIVE: CASE EVENT DATE: 20130507
